FAERS Safety Report 9411779 (Version 3)
Quarter: 2013Q3

REPORT INFORMATION
  Report Type: Spontaneous
  Country: US (occurrence: US)
  Receive Date: 20130722
  Receipt Date: 20130819
  Transmission Date: 20140515
  Serious: No
  Sender: FDA-Public Use
  Company Number: US-PFIZER INC-2013212253

PATIENT
  Age: 49 Year
  Sex: Female

DRUGS (5)
  1. ALPRAZOLAM [Suspect]
     Dosage: 0.25 MG, UNK
  2. SKELAXIN [Suspect]
     Dosage: 800 UNK, UNK
  3. CODEINE [Suspect]
     Dosage: UNK
  4. SAVELLA [Suspect]
     Dosage: UNK
  5. VICODIN [Suspect]
     Dosage: HYDROCODONE BITARTRATE 7.5MG /PARACETAMOL, 325MG, UNK

REACTIONS (1)
  - Drug hypersensitivity [Unknown]
